FAERS Safety Report 7950736-0 (Version None)
Quarter: 2011Q4

REPORT INFORMATION
  Report Type: 
  Country: None (occurrence: None)
  Receive Date: 20111123
  Receipt Date: 20111109
  Transmission Date: 20120403
  Serious: Yes (Hospitalization, Other)
  Sender: FDA-Public Use
  Company Number: 2011S1023446

PATIENT
  Age: 50 Year
  Sex: Female
  Weight: 83.9154 kg

DRUGS (11)
  1. DIGOXIN [Suspect]
     Indication: VENTRICULAR TACHYCARDIA
     Dosage: 0.25 MG; DAILY, 0.25 MG; DAILY
     Dates: start: 20070423, end: 20080310
  2. DIGOXIN [Suspect]
     Indication: VENTRICULAR TACHYCARDIA
     Dosage: 0.25 MG; DAILY, 0.25 MG; DAILY
     Dates: start: 20060121, end: 20070319
  3. VOLTAREN [Concomitant]
  4. CAPOTEN [Concomitant]
  5. GLIPIZIDE [Concomitant]
  6. LASIX [Concomitant]
  7. METFORMIN HCL [Concomitant]
  8. ALDACTONE [Concomitant]
  9. NEXILETINE [Concomitant]
  10. RYTHMOL [Concomitant]
  11. COREG [Concomitant]

REACTIONS (14)
  - PALPITATIONS [None]
  - PRESYNCOPE [None]
  - ANXIETY [None]
  - ASTHENIA [None]
  - DIZZINESS [None]
  - NAUSEA [None]
  - MALAISE [None]
  - CHILLS [None]
  - AGITATION [None]
  - DEVICE MALFUNCTION [None]
  - TOXICITY TO VARIOUS AGENTS [None]
  - PARAESTHESIA [None]
  - DYSPNOEA [None]
  - LETHARGY [None]
